FAERS Safety Report 5837830-5 (Version None)
Quarter: 2008Q3

REPORT INFORMATION
  Report Type: 
  Country: None (occurrence: None)
  Receive Date: 20080808
  Receipt Date: 20080730
  Transmission Date: 20090109
  Serious: Yes (Hospitalization)
  Sender: FDA-Public Use
  Company Number: US-WYE-H05322608

PATIENT
  Age: 2 Year
  Sex: Female
  Weight: 14.53 kg

DRUGS (1)
  1. CHILDREN'S ADVIL [Suspect]
     Dosage: DRANK AN UNKNOWN AMOUNT  FROM BOTTLE X 1
     Route: 048
     Dates: start: 20080611, end: 20080611

REACTIONS (4)
  - ACCIDENTAL DRUG INTAKE BY CHILD [None]
  - ACCIDENTAL OVERDOSE [None]
  - PALPITATIONS [None]
  - VOMITING [None]
